FAERS Safety Report 21909619 (Version 1)
Quarter: 2023Q1

REPORT INFORMATION
  Report Type: Spontaneous
  Country: US (occurrence: None)
  Receive Date: 20230125
  Receipt Date: 20230125
  Transmission Date: 20230417
  Serious: No
  Sender: FDA-Public Use
  Company Number: None

PATIENT
  Sex: Male
  Weight: 94.8 kg

DRUGS (16)
  1. LENALIDOMIDE [Suspect]
     Active Substance: LENALIDOMIDE
     Indication: Myelodysplastic syndrome
     Dosage: FREQUENCY : DAILY;?
     Route: 048
  2. CRANBERRY [Concomitant]
     Active Substance: CRANBERRY
  3. CYMBALTA [Concomitant]
     Active Substance: DULOXETINE HYDROCHLORIDE
  4. Ditlazem [Concomitant]
  5. ELIQUIS [Concomitant]
     Active Substance: APIXABAN
  6. EXJADE [Concomitant]
     Active Substance: DEFERASIROX
  7. FINASTERIDE [Concomitant]
     Active Substance: FINASTERIDE
  8. GLUCOSAMINE [Concomitant]
     Active Substance: GLUCOSAMINE
  9. LIPITOR [Concomitant]
     Active Substance: ATORVASTATIN CALCIUM
  10. LYCOPENE [Concomitant]
     Active Substance: LYCOPENE
  11. METFORMIN [Concomitant]
  12. METOPROLOL [Concomitant]
     Active Substance: METOPROLOL
  13. PANTOPRAZOLE [Concomitant]
     Active Substance: PANTOPRAZOLE
  14. SUCRALFATE [Concomitant]
     Active Substance: SUCRALFATE
  15. VITAMIN D3 [Concomitant]
     Active Substance: CHOLECALCIFEROL
  16. VITAMIN E [Concomitant]
     Active Substance: .ALPHA.-TOCOPHEROL

REACTIONS (1)
  - Platelet count decreased [None]
